FAERS Safety Report 5220615-0 (Version None)
Quarter: 2007Q1

REPORT INFORMATION
  Report Type: 
  Country: None (occurrence: None)
  Receive Date: 20070126
  Receipt Date: 20070119
  Transmission Date: 20070707
  Serious: Yes (Hospitalization)
  Sender: FDA-Public Use
  Company Number: FR-AVENTIS-200710002FR

PATIENT
  Age: 55 Year
  Sex: Female
  Weight: 87 kg

DRUGS (4)
  1. TAXOTERE [Suspect]
     Indication: BREAST CANCER
     Route: 042
     Dates: start: 20060221, end: 20060221
  2. EPIRUBICIN [Suspect]
     Indication: BREAST CANCER
     Route: 042
     Dates: start: 20060221, end: 20060221
  3. ZOLOFT [Concomitant]
     Indication: DEPRESSION
  4. SERESTA [Concomitant]
     Indication: ANXIETY

REACTIONS (3)
  - CAROTID ARTERY OCCLUSION [None]
  - HEMIPLEGIA [None]
  - ISCHAEMIC STROKE [None]
